FAERS Safety Report 13531114 (Version 1)
Quarter: 2017Q2

REPORT INFORMATION
  Report Type: Spontaneous
  Country: CH (occurrence: CH)
  Receive Date: 20170510
  Receipt Date: 20170510
  Transmission Date: 20170830
  Serious: Yes (Other)
  Sender: FDA-Public Use
  Company Number: CH-ROCHE-1931067

PATIENT
  Age: 97 Year
  Sex: Male

DRUGS (10)
  1. ROCEPHIN [Suspect]
     Active Substance: CEFTRIAXONE SODIUM
     Indication: CHOLECYSTITIS ACUTE
     Route: 041
     Dates: start: 20170414, end: 20170415
  2. TAZOBACTAM/PIPERACILLIN [Concomitant]
     Active Substance: PIPERACILLIN SODIUM\TAZOBACTAM SODIUM
     Route: 065
     Dates: start: 20170416
  3. TEMGESIC [Concomitant]
     Active Substance: BUPRENORPHINE HYDROCHLORIDE
     Route: 065
     Dates: start: 20170415
  4. VI-DE 3 [Concomitant]
     Active Substance: CHOLECALCIFEROL
     Route: 065
  5. ASPIRIN CARDIO [Concomitant]
     Active Substance: ASPIRIN
     Route: 065
  6. CIPROXINE [Suspect]
     Active Substance: CIPROFLOXACIN
     Indication: CHOLECYSTITIS ACUTE
     Route: 048
     Dates: start: 20170410, end: 20170413
  7. EPOETIN BETA [Concomitant]
     Active Substance: ERYTHROPOIETIN
     Route: 065
  8. REMERON [Concomitant]
     Active Substance: MIRTAZAPINE
     Route: 065
  9. TOREM [Concomitant]
     Active Substance: TORSEMIDE
     Route: 065
  10. FLAGYL [Suspect]
     Active Substance: METRONIDAZOLE\METRONIDAZOLE HYDROCHLORIDE
     Indication: CHOLECYSTITIS ACUTE
     Route: 048
     Dates: start: 20170413, end: 20170415

REACTIONS (1)
  - Liver injury [Recovering/Resolving]

NARRATIVE: CASE EVENT DATE: 20170414
